FAERS Safety Report 25648940 (Version 1)
Quarter: 2025Q3

REPORT INFORMATION
  Report Type: Spontaneous
  Country: AU (occurrence: AU)
  Receive Date: 20250806
  Receipt Date: 20250806
  Transmission Date: 20251020
  Serious: Yes (Other)
  Sender: ACCORD
  Company Number: None

PATIENT
  Age: 45 Year
  Sex: Female

DRUGS (5)
  1. CISPLATIN [Suspect]
     Active Substance: CISPLATIN
     Indication: Product used for unknown indication
  2. CARBOPLATIN [Suspect]
     Active Substance: CARBOPLATIN
     Indication: Product used for unknown indication
  3. PACLITAXEL [Suspect]
     Active Substance: PACLITAXEL
  4. PEMETREXED [Suspect]
     Active Substance: PEMETREXED
     Indication: Product used for unknown indication
  5. NIVOLUMAB [Suspect]
     Active Substance: NIVOLUMAB
     Indication: Product used for unknown indication

REACTIONS (7)
  - Pneumonia [Unknown]
  - Anaphylactic reaction [Unknown]
  - Hepatic function abnormal [Unknown]
  - Hepatic lesion [Unknown]
  - Pyrexia [Unknown]
  - Rash [Unknown]
  - Respiratory tract infection [Unknown]
